FAERS Safety Report 11785915 (Version 1)
Quarter: 2015Q4

REPORT INFORMATION
  Report Type: Other
  Country: GB (occurrence: GB)
  Receive Date: 20151130
  Receipt Date: 20151130
  Transmission Date: 20160305
  Serious: Yes (Hospitalization)
  Sender: FDA-Public Use
  Company Number: GB-MYLANLABS-2015M1040680

PATIENT

DRUGS (12)
  1. PARACETAMOL [Concomitant]
     Active Substance: ACETAMINOPHEN
     Dosage: 1 G, UNK
     Route: 048
  2. SULFASALAZINE. [Suspect]
     Active Substance: SULFASALAZINE
     Dosage: 1.5 MG, QD (AT NIGHT)
     Route: 048
     Dates: end: 20151030
  3. AMLODIPINE [Suspect]
     Active Substance: AMLODIPINE BESYLATE
     Dosage: 10 MG, QD (EVERY MORNING)
     Route: 048
     Dates: start: 20150401, end: 20151030
  4. AQUEOUS                            /00662801/ [Concomitant]
     Dosage: 1 DF, UNK
     Route: 061
  5. BENDROFLUMETHIAZIDE [Suspect]
     Active Substance: BENDROFLUMETHIAZIDE
     Dosage: 2.5 MG, QD (EVERY MORNING)
     Route: 048
     Dates: end: 20151030
  6. ADCAL D3 [Concomitant]
     Active Substance: CALCIUM CARBONATE\CHOLECALCIFEROL
     Dosage: 1500 MG, QD
     Route: 048
  7. FOLIC ACID. [Concomitant]
     Active Substance: FOLIC ACID
     Dosage: 5 MG, QD (EVERY MORNING)
  8. PROPRANOLOL [Concomitant]
     Active Substance: PROPRANOLOL\PROPRANOLOL HYDROCHLORIDE
     Dosage: 160 MG, QD (EVERY MORNING)
     Route: 048
  9. OMEPRAZOLE. [Concomitant]
     Active Substance: OMEPRAZOLE
     Dosage: 40 MG, QD (EVERY NIGHT)
  10. SIMVASTATIN. [Suspect]
     Active Substance: SIMVASTATIN
     Dosage: 20 MG, QD (AT NIGHT)
     Route: 048
  11. CHLORPHENAMINE [Concomitant]
     Active Substance: CHLORPHENIRAMINE MALEATE
     Dosage: 4 MG, TID
     Route: 048
  12. CODEINE [Concomitant]
     Active Substance: CODEINE
     Dosage: 300 MG, UNK (4 TIMES A DAY AS NEEDED)
     Route: 048

REACTIONS (2)
  - Blood pressure decreased [Not Recovered/Not Resolved]
  - Dermatitis exfoliative [Not Recovered/Not Resolved]

NARRATIVE: CASE EVENT DATE: 20150928
